FAERS Safety Report 12940984 (Version 1)
Quarter: 2016Q4

REPORT INFORMATION
  Report Type: Spontaneous
  Country: US (occurrence: US)
  Receive Date: 20161114
  Receipt Date: 20161114
  Transmission Date: 20170207
  Serious: No
  Sender: FDA-Public Use
  Company Number: US-PFIZER INC-2016524774

PATIENT
  Sex: Male

DRUGS (1)
  1. XELJANZ [Suspect]
     Active Substance: TOFACITINIB CITRATE
     Dosage: 5 MG, UNK

REACTIONS (14)
  - Swelling [Unknown]
  - Feeling abnormal [Unknown]
  - Muscle spasms [Unknown]
  - Myalgia [Unknown]
  - Musculoskeletal stiffness [Unknown]
  - Middle insomnia [Unknown]
  - Arthralgia [Unknown]
  - Tenderness [Unknown]
  - Contusion [Unknown]
  - Insomnia [Unknown]
  - Mobility decreased [Unknown]
  - Crepitations [Unknown]
  - Joint instability [Unknown]
  - Back pain [Unknown]
